FAERS Safety Report 7444420-X (Version None)
Quarter: 2011Q2

REPORT INFORMATION
  Report Type: 
  Country: None (occurrence: None)
  Receive Date: 20110429
  Receipt Date: 20110406
  Transmission Date: 20111010
  Serious: No
  Sender: FDA-Public Use
  Company Number: US-B.I. PHARMACEUTICALS,INC./RIDGEFIELD-2011-BP-10194BP

PATIENT
  Sex: Male

DRUGS (7)
  1. MIRAPEX [Suspect]
     Indication: PERIODIC LIMB MOVEMENT DISORDER
     Dosage: 0.125 MG
     Route: 048
     Dates: start: 20101008
  2. AVODART [Concomitant]
     Indication: PROSTATOMEGALY
     Dosage: 5 MG
  3. LIPITOR [Suspect]
     Indication: BLOOD CHOLESTEROL
     Dosage: 10 MG
     Dates: start: 20060101
  4. MIRAPEX [Suspect]
     Dosage: 0.25 MG
     Route: 048
     Dates: start: 20101001, end: 20101210
  5. UROXATRAL [Concomitant]
     Indication: PROSTATOMEGALY
     Dosage: 10 MG
  6. MIRAPEX [Suspect]
     Dosage: 0.25 MG
     Route: 048
     Dates: start: 20101001, end: 20101001
  7. TESTOSTERONE THERAPY [Concomitant]
     Route: 051

REACTIONS (10)
  - JOINT SWELLING [None]
  - OEDEMA PERIPHERAL [None]
  - HYPERAESTHESIA [None]
  - MUSCLE TWITCHING [None]
  - ARTHRALGIA [None]
  - PAIN IN EXTREMITY [None]
  - WITHDRAWAL SYNDROME [None]
  - PROSTATITIS [None]
  - MUSCULOSKELETAL STIFFNESS [None]
  - MYALGIA [None]
